FAERS Safety Report 9760252 (Version 1)
Quarter: 2013Q4

REPORT INFORMATION
  Report Type: Spontaneous
  Country: US (occurrence: US)
  Receive Date: 20131216
  Receipt Date: 20131216
  Transmission Date: 20140711
  Serious: No
  Sender: FDA-Public Use
  Company Number: US-GILEAD-2010-0027840

PATIENT
  Sex: Female
  Weight: 63.5 kg

DRUGS (12)
  1. LETAIRIS [Suspect]
     Indication: PULMONARY ARTERIAL HYPERTENSION
     Route: 048
     Dates: start: 20090903
  2. COUMADIN [Concomitant]
  3. NORVASC [Concomitant]
  4. COZAAR [Concomitant]
  5. ALTACE [Concomitant]
  6. TOPROL XL [Concomitant]
  7. CRESTOR [Concomitant]
  8. CENTRUM SILVER [Concomitant]
  9. VITAMIN C [Concomitant]
  10. FISH OIL [Concomitant]
  11. COENZYME Q10 [Concomitant]
  12. CALCIUM +D [Concomitant]

REACTIONS (1)
  - Nasal congestion [Unknown]
